FAERS Safety Report 6369820-0 (Version None)
Quarter: 2009Q3

REPORT INFORMATION
  Report Type: 
  Country: None (occurrence: None)
  Receive Date: 20090923
  Receipt Date: 20090918
  Transmission Date: 20100115
  Serious: Yes (Hospitalization, Other)
  Sender: FDA-Public Use
  Company Number: US-TEVA-209713USA

PATIENT
  Sex: Female

DRUGS (6)
  1. BACLOFEN TABLETS USP, 10MG [Suspect]
     Indication: DRUG USE FOR UNKNOWN INDICATION
     Dosage: 1/2 TAB IN AM, 1/2 TAB WITH LUNCH, 1/2 TAB WITH SUPPER, 1/2 TAB AT NIGHT
     Route: 048
     Dates: start: 20060101
  2. FENTANYL TRANSDERMAL SYSTEM [Suspect]
     Indication: BACK PAIN
     Dosage: 1 PATCH, Q 72 HOURS
     Route: 062
     Dates: start: 20090305
  3. PHENYTOIN [Suspect]
     Indication: CONVULSION
     Dosage: 2 TABS AT 2 PM, 2 TABS AT 10 PM
     Route: 048
     Dates: start: 20090201, end: 20090425
  4. LEVETIRACETAM [Suspect]
     Indication: CONVULSION
     Route: 048
     Dates: start: 20090201, end: 20090425
  5. LAMOTRIGINE [Suspect]
     Indication: CONVULSION
     Route: 048
     Dates: start: 20090201
  6. TRAMADOL HCL [Suspect]
     Indication: DRUG USE FOR UNKNOWN INDICATION
     Dates: start: 20050101, end: 20090201

REACTIONS (8)
  - CONFUSIONAL STATE [None]
  - CONVULSION [None]
  - DRUG TOXICITY [None]
  - HEADACHE [None]
  - HYPERHIDROSIS [None]
  - LOSS OF CONSCIOUSNESS [None]
  - URINARY TRACT INFECTION [None]
  - VENTRICULAR TACHYCARDIA [None]
